FAERS Safety Report 15734227 (Version 1)
Quarter: 2018Q4

REPORT INFORMATION
  Report Type: Spontaneous
  Country: US (occurrence: US)
  Receive Date: 20181203
  Receipt Date: 20181203
  Transmission Date: 20190205
  Serious: Yes (Hospitalization)
  Sender: FDA-Public Use
  Company Number: None

PATIENT
  Age: 3 Year
  Sex: Male

DRUGS (8)
  1. ALBUTEROL 0.083% NEBULIZER SOLN [Suspect]
     Active Substance: ALBUTEROL
     Indication: CYSTIC FIBROSIS
  2. BETHKIS [Concomitant]
     Active Substance: TOBRAMYCIN
  3. BUDESONIDE. [Concomitant]
     Active Substance: BUDESONIDE
  4. POLYETH GLYCOL [Concomitant]
  5. VENTOLIN [Concomitant]
     Active Substance: ALBUTEROL SULFATE
  6. PULMOZYME [Concomitant]
     Active Substance: DORNASE ALFA
  7. ALBUTEROL 0.083% NEBULIZER SOLN [Suspect]
     Active Substance: ALBUTEROL
     Indication: CYSTIC FIBROSIS
     Route: 055
     Dates: start: 20151224
  8. CREON [Concomitant]
     Active Substance: PANCRELIPASE AMYLASE\PANCRELIPASE LIPASE\PANCRELIPASE PROTEASE

REACTIONS (1)
  - Bronchitis [None]

NARRATIVE: CASE EVENT DATE: 20181116
